FAERS Safety Report 11298489 (Version 1)
Quarter: 2015Q3

REPORT INFORMATION
  Report Type: Spontaneous
  Country: US (occurrence: US)
  Receive Date: 20150722
  Receipt Date: 20150722
  Transmission Date: 20151125
  Serious: No
  Sender: FDA-Public Use
  Company Number: US-ELI_LILLY_AND_COMPANY-US200908003725

PATIENT
  Age: 48 Year
  Sex: Female

DRUGS (10)
  1. BENICAR HCT [Concomitant]
     Active Substance: HYDROCHLOROTHIAZIDE\OLMESARTAN MEDOXOMIL
  2. HUMATROPE [Suspect]
     Active Substance: SOMATROPIN
     Dosage: 0.1 MG, QOD
     Dates: start: 20090803
  3. HUMATROPE [Suspect]
     Active Substance: SOMATROPIN
     Dosage: UNK, UNKNOWN
  4. FISH OIL [Concomitant]
     Active Substance: FISH OIL
  5. DARVOCET [Concomitant]
     Active Substance: ACETAMINOPHEN\PROPOXYPHENE HYDROCHLORIDE
     Dosage: UNK, AS NEEDED
  6. VITAMIN D [Concomitant]
     Active Substance: CHOLECALCIFEROL
  7. IBUPROFEN. [Concomitant]
     Active Substance: IBUPROFEN
     Dosage: UNK, AS NEEDED
  8. HUMATROPE [Suspect]
     Active Substance: SOMATROPIN
     Indication: GROWTH HORMONE DEFICIENCY
     Dosage: 0.2 MG, UNK
     Dates: start: 20090622, end: 20090727
  9. HUMATROPE [Suspect]
     Active Substance: SOMATROPIN
     Dosage: UNK, UNKNOWN
  10. ESTROGENS, COMBINATIONS WITH OTHER DRUGS [Concomitant]

REACTIONS (14)
  - Musculoskeletal pain [Unknown]
  - Myalgia [Recovering/Resolving]
  - Headache [Recovered/Resolved]
  - Injection site pain [Unknown]
  - Skin haemorrhage [Unknown]
  - Epistaxis [Recovered/Resolved]
  - Contusion [Unknown]
  - Chest discomfort [Unknown]
  - Drug prescribing error [Unknown]
  - Joint swelling [Not Recovered/Not Resolved]
  - Arthralgia [Unknown]
  - Tenderness [Unknown]
  - Palpitations [Unknown]
  - Oedema peripheral [Not Recovered/Not Resolved]

NARRATIVE: CASE EVENT DATE: 200906
